FAERS Safety Report 4499649-X (Version None)
Quarter: 2004Q4

REPORT INFORMATION
  Report Type: 
  Country: None (occurrence: None)
  Receive Date: 20041108
  Receipt Date: 20041025
  Transmission Date: 20050328
  Serious: Yes (Death)
  Sender: FDA-Public Use
  Company Number: 2004083002

PATIENT
  Sex: Female

DRUGS (2)
  1. VIAGRA [Suspect]
     Indication: PULMONARY HYPERTENSION
     Dosage: 150 MG (50 MG)
     Dates: start: 20040101
  2. BOSENTAN (BOSENTAN) [Concomitant]

REACTIONS (2)
  - ASPIRATION BRONCHIAL [None]
  - UNEVALUABLE EVENT [None]
